FAERS Safety Report 6608742-4 (Version None)
Quarter: 2010Q1

REPORT INFORMATION
  Report Type: 
  Country: None (occurrence: None)
  Receive Date: 20100223
  Receipt Date: 20100211
  Transmission Date: 20100710
  Serious: Yes (Hospitalization)
  Sender: FDA-Public Use
  Company Number: 2009SP017405

PATIENT
  Age: 29 Year
  Sex: Female
  Weight: 106.5953 kg

DRUGS (4)
  1. NUVARING [Suspect]
     Indication: CONTRACEPTION
     Dosage: 1 DF; QM; VAG
     Route: 067
     Dates: start: 20050829, end: 20051101
  2. SYNTHROID [Concomitant]
  3. ADVIL LIQUI-GELS [Concomitant]
  4. ALEVE (CAPLET) [Concomitant]

REACTIONS (16)
  - ALANINE AMINOTRANSFERASE INCREASED [None]
  - ASPARTATE AMINOTRANSFERASE INCREASED [None]
  - CHOLELITHIASIS [None]
  - DEEP VEIN THROMBOSIS [None]
  - DISEASE RECURRENCE [None]
  - FACIAL PAIN [None]
  - FATIGUE [None]
  - HEADACHE [None]
  - LACRIMATION INCREASED [None]
  - MULTIPLE ALLERGIES [None]
  - MUSCLE SPASMS [None]
  - PAIN [None]
  - PULMONARY EMBOLISM [None]
  - RHINORRHOEA [None]
  - ROAD TRAFFIC ACCIDENT [None]
  - SNEEZING [None]
